FAERS Safety Report 7475419-5 (Version None)
Quarter: 2011Q2

REPORT INFORMATION
  Report Type: 
  Country: None (occurrence: None)
  Receive Date: 20110510
  Receipt Date: 20110510
  Transmission Date: 20111010
  Serious: Yes (Hospitalization)
  Sender: FDA-Public Use
  Company Number: None

PATIENT
  Sex: Male
  Weight: 66.9 kg

DRUGS (1)
  1. LENALIDOMIDE [Suspect]
     Indication: HEPATIC CANCER METASTATIC
     Dosage: 25 MG DAILY Q 21 DAYS P.O.
     Route: 048
     Dates: start: 20110308, end: 20110424

REACTIONS (4)
  - ILIUM FRACTURE [None]
  - METASTATIC NEOPLASM [None]
  - DISEASE PROGRESSION [None]
  - PATHOLOGICAL FRACTURE [None]
